FAERS Safety Report 5013264-0 (Version None)
Quarter: 2006Q2

REPORT INFORMATION
  Report Type: 
  Country: None (occurrence: None)
  Receive Date: 20060530
  Receipt Date: 20060403
  Transmission Date: 20061013
  Serious: No
  Sender: FDA-Public Use
  Company Number: US-GLAXOSMITHKLINE-A0600099A

PATIENT
  Age: 52 Year
  Sex: Female

DRUGS (9)
  1. WELLBUTRIN XL [Suspect]
     Indication: DEPRESSION
     Dosage: 150MG PER DAY
     Route: 048
     Dates: start: 20060327
  2. ZOLOFT [Concomitant]
  3. CIPRO [Concomitant]
  4. SULFADINE [Concomitant]
  5. DIFLUCAN [Concomitant]
  6. ENTOCORT [Concomitant]
  7. LOPERAMIDE [Concomitant]
  8. AVANDIA [Concomitant]
  9. ZETIA [Concomitant]

REACTIONS (2)
  - DRUG ADMINISTRATION ERROR [None]
  - MEDICATION RESIDUE [None]
